FAERS Safety Report 7865972-1 (Version None)
Quarter: 2011Q4

REPORT INFORMATION
  Report Type: 
  Country: None (occurrence: None)
  Receive Date: 20111028
  Receipt Date: 20110331
  Transmission Date: 20120403
  Serious: No
  Sender: FDA-Public Use
  Company Number: US-GLAXOSMITHKLINE-A0920871A

PATIENT
  Age: 92 Year
  Sex: Female

DRUGS (5)
  1. LOSARTAN POTASSIUM [Concomitant]
  2. INSULIN [Concomitant]
  3. ADVAIR DISKUS 100/50 [Suspect]
     Indication: CHRONIC OBSTRUCTIVE PULMONARY DISEASE
     Route: 055
     Dates: start: 20110308, end: 20110326
  4. GLUCOTROL [Concomitant]
  5. ALBUTEROL NEBULIZED [Concomitant]

REACTIONS (3)
  - ORAL DISORDER [None]
  - NASAL MUCOSAL DISORDER [None]
  - NASAL ULCER [None]
